FAERS Safety Report 6005431-4 (Version None)
Quarter: 2008Q4

REPORT INFORMATION
  Report Type: 
  Country: None (occurrence: None)
  Receive Date: 20081217
  Receipt Date: 20081210
  Transmission Date: 20090506
  Serious: Yes (Hospitalization)
  Sender: FDA-Public Use
  Company Number: DE-JNJFOC-20081101873

PATIENT
  Age: 53 Year
  Sex: Female

DRUGS (7)
  1. HALDOL [Suspect]
     Route: 048
  2. HALDOL [Suspect]
     Indication: DRUG USE FOR UNKNOWN INDICATION
     Route: 048
  3. DISTRANEURIN [Concomitant]
     Route: 048
  4. DISTRANEURIN [Concomitant]
     Route: 048
  5. DISTRANEURIN [Concomitant]
     Route: 048
  6. DISTRANEURIN [Concomitant]
     Route: 048
  7. AKINETON [Concomitant]
     Route: 048

REACTIONS (3)
  - BLOOD CREATINE PHOSPHOKINASE INCREASED [None]
  - CHILLS [None]
  - OROPHARYNGEAL SPASM [None]
